FAERS Safety Report 13929888 (Version 1)
Quarter: 2017Q3

REPORT INFORMATION
  Report Type: Spontaneous
  Country: ES (occurrence: ES)
  Receive Date: 20170901
  Receipt Date: 20170901
  Transmission Date: 20171127
  Serious: Yes (Hospitalization, Other)
  Sender: FDA-Public Use
  Company Number: ES-AUROBINDO-AUR-APL-2011-03998

PATIENT

DRUGS (4)
  1. TOPIRAMATO AUROBINDO COMPRIMIDOS RECUBIERTOS CON PELICULA 200MG [Suspect]
     Active Substance: TOPIRAMATE
     Indication: EPILEPSY
     Dosage: 200 MG,DAILY,
     Route: 065
  2. VALPROIC ACID. [Interacting]
     Active Substance: VALPROIC ACID
     Indication: EPILEPSY
     Dosage: 1500 MG,DAILY,
     Route: 065
  3. TOPIRAMATO AUROBINDO COMPRIMIDOS RECUBIERTOS CON PELICULA 200MG [Interacting]
     Active Substance: TOPIRAMATE
     Dosage: 300 MG,DAILY,
     Route: 065
  4. PHENOBARBITAL. [Interacting]
     Active Substance: PHENOBARBITAL
     Indication: EPILEPSY
     Dosage: 100 MG,DAILY,
     Route: 065

REACTIONS (8)
  - Aphasia [Recovered/Resolved]
  - Disorientation [Recovered/Resolved]
  - Gait disturbance [Recovered/Resolved]
  - Drug interaction [Recovered/Resolved]
  - Hyperammonaemic encephalopathy [Recovered/Resolved]
  - Dyskinesia [Recovered/Resolved]
  - Ammonia increased [Recovered/Resolved]
  - Abnormal behaviour [Recovered/Resolved]
